FAERS Safety Report 7080382-5 (Version None)
Quarter: 2010Q4

REPORT INFORMATION
  Report Type: 
  Country: None (occurrence: None)
  Receive Date: 20101025
  Receipt Date: 20100817
  Transmission Date: 20110411
  Serious: Yes (Other)
  Sender: FDA-Public Use
  Company Number: ACO_01864_2010

PATIENT
  Sex: Female
  Weight: 53.5244 kg

DRUGS (7)
  1. AMPYRA [Suspect]
     Indication: GAIT DISTURBANCE
     Dosage: (1 DF BID, TOOK ONLY 2 DOSES ORAL)
     Route: 048
     Dates: start: 20100809, end: 20100810
  2. COPAXONE /03175301/ [Concomitant]
  3. SOLU-MEDROL [Concomitant]
  4. PROVIGIL [Concomitant]
  5. DETROL [Concomitant]
  6. EVISTA [Concomitant]
  7. SYNTHROID [Concomitant]

REACTIONS (5)
  - CONDITION AGGRAVATED [None]
  - DIARRHOEA [None]
  - MUSCLE SPASTICITY [None]
  - NAUSEA [None]
  - PARAESTHESIA [None]
